FAERS Safety Report 18415735 (Version 3)
Quarter: 2020Q4

REPORT INFORMATION
  Report Type: Report from Study
  Country: US (occurrence: US)
  Receive Date: 20201022
  Receipt Date: 20201217
  Transmission Date: 20210114
  Serious: Yes (Other)
  Sender: FDA-Public Use
  Company Number: US-JNJFOC-A-US2019-197249

PATIENT
  Age: 68 Year
  Sex: Female
  Weight: 72.64 kg

DRUGS (15)
  1. UPTRAVI [Suspect]
     Active Substance: SELEXIPAG
     Dosage: 600 MCG IN AM AND 800 MCG IN PM
     Route: 048
  2. UPTRAVI [Suspect]
     Active Substance: SELEXIPAG
     Dosage: 200 MCG, BID
     Route: 048
  3. WARFARIN [Concomitant]
     Active Substance: WARFARIN
  4. BUMEX [Suspect]
     Active Substance: BUMETANIDE
     Indication: PRODUCT USED FOR UNKNOWN INDICATION
     Route: 065
  5. TYLENOL [Concomitant]
     Active Substance: ACETAMINOPHEN
  6. OPSUMIT [Suspect]
     Active Substance: MACITENTAN
     Indication: PULMONARY ARTERIAL HYPERTENSION
     Route: 048
  7. UPTRAVI [Suspect]
     Active Substance: SELEXIPAG
     Indication: PULMONARY ARTERIAL HYPERTENSION
     Route: 048
  8. UPTRAVI [Suspect]
     Active Substance: SELEXIPAG
     Dosage: 400 MCG, BID
     Route: 048
     Dates: start: 201912
  9. UPTRAVI [Suspect]
     Active Substance: SELEXIPAG
     Dosage: UNK
     Route: 048
  10. UPTRAVI [Suspect]
     Active Substance: SELEXIPAG
     Route: 048
  11. OPSUMIT [Suspect]
     Active Substance: MACITENTAN
     Route: 048
  12. UPTRAVI [Suspect]
     Active Substance: SELEXIPAG
     Route: 048
  13. OXYCODONE [Concomitant]
     Active Substance: OXYCODONE
  14. UPTRAVI [Suspect]
     Active Substance: SELEXIPAG
     Dosage: 600 MCG, BID
     Route: 048
     Dates: start: 20200531
  15. IRON [Concomitant]
     Active Substance: IRON

REACTIONS (34)
  - Defaecation urgency [Unknown]
  - Peripheral swelling [Unknown]
  - Abdominal discomfort [Unknown]
  - Feeling abnormal [Unknown]
  - Weight decreased [Unknown]
  - Diarrhoea [Not Recovered/Not Resolved]
  - Nasal disorder [Unknown]
  - Stool analysis abnormal [Unknown]
  - Gastrointestinal disorder [Unknown]
  - Pain in jaw [Recovered/Resolved]
  - Cardiomegaly [Unknown]
  - Abnormal faeces [Unknown]
  - Faeces soft [Not Recovered/Not Resolved]
  - Varicose vein [Unknown]
  - Nausea [Unknown]
  - Headache [Not Recovered/Not Resolved]
  - Oxygen saturation abnormal [Unknown]
  - Nasal congestion [Not Recovered/Not Resolved]
  - Sneezing [Unknown]
  - Flatulence [Unknown]
  - Cardiac failure congestive [Unknown]
  - Oxygen consumption increased [Unknown]
  - Decreased appetite [Unknown]
  - Facial pain [Unknown]
  - Oedema peripheral [Unknown]
  - Dehydration [Unknown]
  - Cellulitis [Not Recovered/Not Resolved]
  - Chest discomfort [Unknown]
  - Diarrhoea [Unknown]
  - Wound [Not Recovered/Not Resolved]
  - Pollakiuria [Unknown]
  - Frequent bowel movements [Unknown]
  - Abdominal pain upper [Unknown]
  - Somnolence [Unknown]

NARRATIVE: CASE EVENT DATE: 20191022
